FAERS Safety Report 8615908 (Version 2)
Quarter: 2012Q4

REPORT INFORMATION
  Report Type: 
  Country: US (occurrence: US)
  Receive Date: 20120614
  Receipt Date: 20120927
  Transmission Date: 20130627
  Serious: No
  Sender: FDA-Public Use
  Company Number: US-AMGEN-USASP2012023442

PATIENT
  Age: 65 Year
  Sex: Female

DRUGS (13)
  1. PROLIA [Suspect]
     Indication: OSTEOPOROSIS POSTMENOPAUSAL
     Dosage: UNK UNK, q6mo
     Dates: start: 20110725
  2. PROLIA [Suspect]
     Dates: start: 20120207
  3. DIM [Concomitant]
     Dosage: UNK
  4. SINGULAIR [Concomitant]
     Dosage: UNK
  5. KT [Concomitant]
     Dosage: UNK
  6. FISH OIL [Concomitant]
     Dosage: UNK
  7. MVI [Concomitant]
     Dosage: UNK
  8. GLUCOSAMINE [Concomitant]
     Dosage: UNK
  9. CALCIUM MAGNESIUM [Concomitant]
     Dosage: UNK
  10. VITAMIN D3 [Concomitant]
     Dosage: UNK
  11. GABAPENTIN [Concomitant]
     Dosage: UNK
  12. GAMMA AMINO BETA HYDROXYBUTYRIC ACID [Concomitant]
     Dosage: UNK
  13. PYRIDACIL [Concomitant]
     Dosage: UNK

REACTIONS (15)
  - Sleep apnoea syndrome [Not Recovered/Not Resolved]
  - Tinea pedis [Not Recovered/Not Resolved]
  - Skin exfoliation [Not Recovered/Not Resolved]
  - Weight increased [Not Recovered/Not Resolved]
  - Chills [Not Recovered/Not Resolved]
  - Pollakiuria [Not Recovered/Not Resolved]
  - Nausea [Unknown]
  - Trigger finger [Unknown]
  - Arthralgia [Unknown]
  - Insomnia [Not Recovered/Not Resolved]
  - Oedema peripheral [Not Recovered/Not Resolved]
  - Pruritus [Not Recovered/Not Resolved]
  - Back pain [Not Recovered/Not Resolved]
  - Myalgia [Not Recovered/Not Resolved]
  - Pain in extremity [Not Recovered/Not Resolved]
